FAERS Safety Report 13260229 (Version 3)
Quarter: 2017Q1

REPORT INFORMATION
  Report Type: Spontaneous
  Country: NZ (occurrence: NZ)
  Receive Date: 20170222
  Receipt Date: 20170313
  Transmission Date: 20170428
  Serious: Yes (Hospitalization, Other)
  Sender: FDA-Public Use
  Company Number: NZ-PFIZER INC-2017066633

PATIENT
  Age: 67 Year
  Sex: Female
  Weight: 77 kg

DRUGS (15)
  1. DABIGATRAN [Interacting]
     Active Substance: DABIGATRAN
     Indication: ANTICOAGULANT THERAPY
     Dosage: UNK
     Dates: end: 20141203
  2. DABIGATRAN [Interacting]
     Active Substance: DABIGATRAN
     Dosage: 1 DF, SINGLE
     Dates: start: 20141208, end: 20141208
  3. TRANEXAMIC ACID. [Concomitant]
     Active Substance: TRANEXAMIC ACID
     Indication: HAEMORRHAGE PROPHYLAXIS
     Dosage: 16 MG/KG, INFUSION
  4. METOPROLOL. [Concomitant]
     Active Substance: METOPROLOL
     Indication: ATRIAL FIBRILLATION
     Dosage: UNK
     Dates: start: 2014
  5. AMIODARONE HCL [Suspect]
     Active Substance: AMIODARONE HYDROCHLORIDE
     Indication: ATRIAL FIBRILLATION
     Dosage: UNK
     Dates: start: 2014
  6. ENALAPRIL [Concomitant]
     Active Substance: ENALAPRIL
     Indication: CARDIAC FAILURE CONGESTIVE
     Dosage: UNK
     Dates: start: 2014
  7. FUROSEMIDE. [Concomitant]
     Active Substance: FUROSEMIDE
     Indication: CARDIAC FAILURE CONGESTIVE
     Dosage: UNK
     Route: 042
     Dates: start: 20141229
  8. DABIGATRAN [Interacting]
     Active Substance: DABIGATRAN
     Dosage: 150 MG, 2X/DAY
     Dates: start: 20141217, end: 20141223
  9. LEVOSIMENDAN [Concomitant]
     Active Substance: LEVOSIMENDAN
     Dosage: 12 UG/KG, FOLLOWED BY AN INFUSION OF 0.1 UG/KG/ MIN
  10. LEVOSIMENDAN [Concomitant]
     Active Substance: LEVOSIMENDAN
     Dosage: 0.1 UG/KG/MIN, INFUSION
  11. TRANEXAMIC ACID. [Concomitant]
     Active Substance: TRANEXAMIC ACID
     Indication: HAEMORRHAGE PROPHYLAXIS
     Dosage: 30 MG/KG, LOADING DOSE
  12. DABIGATRAN [Interacting]
     Active Substance: DABIGATRAN
     Dosage: UNK
     Dates: end: 20141229
  13. FUROSEMIDE. [Concomitant]
     Active Substance: FUROSEMIDE
     Indication: CARDIAC FAILURE CONGESTIVE
     Dosage: UNK
     Dates: start: 2014
  14. HEPARIN [Concomitant]
     Active Substance: HEPARIN SODIUM
     Dosage: 30000 IU, UNK
  15. PROTAMINE [Concomitant]
     Active Substance: PROTAMINE
     Dosage: 250 MG, UNK

REACTIONS (4)
  - Pulmonary arterial pressure decreased [Recovering/Resolving]
  - Drug level increased [Recovering/Resolving]
  - Haemorrhage [Recovering/Resolving]
  - Drug interaction [Unknown]

NARRATIVE: CASE EVENT DATE: 20141229
